FAERS Safety Report 23514458 (Version 2)
Quarter: 2024Q1

REPORT INFORMATION
  Report Type: Spontaneous
  Country: SE (occurrence: SE)
  Receive Date: 20240212
  Receipt Date: 20240226
  Transmission Date: 20240410
  Serious: Yes (Other)
  Sender: FDA-Public Use
  Company Number: SE-BAYER-2024A021882

PATIENT
  Sex: Female

DRUGS (3)
  1. VITRAKVI [Suspect]
     Active Substance: LAROTRECTINIB
     Indication: Colorectal cancer
     Dosage: 100 MG, BID
  2. VITRAKVI [Suspect]
     Active Substance: LAROTRECTINIB
     Indication: NTRK gene fusion cancer
  3. VITRAKVI [Suspect]
     Active Substance: LAROTRECTINIB
     Indication: Microsatellite instability cancer

REACTIONS (2)
  - Seizure [None]
  - Fall [None]

NARRATIVE: CASE EVENT DATE: 20240201
